FAERS Safety Report 9116383 (Version 1)
Quarter: 2013Q1

REPORT INFORMATION
  Report Type: Report from Study
  Country: US (occurrence: US)
  Receive Date: 20130225
  Receipt Date: 20130225
  Transmission Date: 20140127
  Serious: Yes (Death)
  Sender: FDA-Public Use
  Company Number: US-ACTELION-A-NJ2013-78810

PATIENT
  Age: 68 Year
  Sex: Female

DRUGS (3)
  1. TRACLEER [Suspect]
     Indication: PULMONARY ARTERIAL HYPERTENSION
     Dosage: UNK
     Route: 048
     Dates: start: 200911
  2. SILDENAFIL [Concomitant]
  3. TYVASO [Concomitant]

REACTIONS (4)
  - Death [Fatal]
  - Oedema peripheral [Unknown]
  - Dyspnoea [Unknown]
  - Syncope [Unknown]
